FAERS Safety Report 6881862-5 (Version None)
Quarter: 2010Q3

REPORT INFORMATION
  Report Type: 
  Country: None (occurrence: None)
  Receive Date: 20100729
  Receipt Date: 20100720
  Transmission Date: 20110219
  Serious: Yes (Death)
  Sender: FDA-Public Use
  Company Number: NSADSS2002030462

PATIENT
  Age: 52 Year
  Sex: Female
  Weight: 60 kg

DRUGS (3)
  1. REMICADE [Suspect]
     Indication: RHEUMATOID ARTHRITIS
     Route: 042
     Dates: start: 20020117
  2. NSAID'S [Concomitant]
     Indication: RHEUMATOID ARTHRITIS
  3. OMEPRAZOLE [Concomitant]
     Indication: RHEUMATOID ARTHRITIS

REACTIONS (4)
  - CEREBRAL THROMBOSIS [None]
  - HAEMOLYTIC ANAEMIA [None]
  - LIVER DISORDER [None]
  - SEPSIS [None]
